FAERS Safety Report 4534269-X (Version None)
Quarter: 2004Q4

REPORT INFORMATION
  Report Type: 
  Country: None (occurrence: None)
  Receive Date: 20041214
  Receipt Date: 20040825
  Transmission Date: 20050328
  Serious: No
  Sender: FDA-Public Use
  Company Number: 2004231406US

PATIENT
  Age: 84 Year
  Sex: Male
  Weight: 56.7 kg

DRUGS (5)
  1. BEXTRA [Suspect]
     Indication: ARTHRITIS
     Dosage: 10 MG, QD, ORAL
     Route: 048
     Dates: start: 20040101
  2. HYTRIN [Concomitant]
  3. CLONAZEPAM [Concomitant]
  4. ACIPHEX [Concomitant]
  5. MECLIZINE [Concomitant]

REACTIONS (3)
  - ABDOMINAL PAIN [None]
  - GROIN PAIN [None]
  - HERNIA [None]
